FAERS Safety Report 18889883 (Version 2)
Quarter: 2021Q2

REPORT INFORMATION
  Report Type: Report from Study
  Country: US (occurrence: US)
  Receive Date: 20210213
  Receipt Date: 20210528
  Transmission Date: 20210717
  Serious: Yes (Hospitalization)
  Sender: FDA-Public Use
  Company Number: US-TEVA-2021-US-1877003

PATIENT
  Age: 61 Year
  Sex: Male

DRUGS (2)
  1. TREPROSTINIL MDV TEVA [Suspect]
     Active Substance: TREPROSTINIL
     Indication: PULMONARY ARTERIAL HYPERTENSION
     Dosage: 74 NG/KG.MIN
     Route: 042
     Dates: start: 20191218
  2. TREPROSTINIL MDV TEVA [Suspect]
     Active Substance: TREPROSTINIL
     Dosage: 105NG/KG/MIN
     Route: 042
     Dates: start: 20191231

REACTIONS (3)
  - Diarrhoea [Unknown]
  - Chest pain [Unknown]
  - Hypoxia [Unknown]

NARRATIVE: CASE EVENT DATE: 202012
